FAERS Safety Report 4986835-5 (Version None)
Quarter: 2006Q2

REPORT INFORMATION
  Report Type: 
  Country: None (occurrence: None)
  Receive Date: 20060428
  Receipt Date: 20051114
  Transmission Date: 20061013
  Serious: Yes (Hospitalization, Disabling, Other)
  Sender: FDA-Public Use
  Company Number: US-MERCK-0511USA02531

PATIENT
  Age: 54 Year
  Sex: Male
  Weight: 86 kg

DRUGS (4)
  1. VIOXX [Suspect]
     Indication: OSTEOARTHRITIS
     Route: 048
     Dates: start: 19990809, end: 20011009
  2. ASPIRIN [Concomitant]
     Route: 065
  3. TYLENOL (CAPLET) [Concomitant]
     Route: 065
  4. PRINZIDE [Concomitant]
     Indication: HYPERTENSION
     Route: 048

REACTIONS (13)
  - BLINDNESS [None]
  - BLOOD PRESSURE INCREASED [None]
  - CATARACT [None]
  - CHEST PAIN [None]
  - DEPRESSION [None]
  - FATIGUE [None]
  - FLANK PAIN [None]
  - NEPHROLITHIASIS [None]
  - PALPITATIONS [None]
  - RETINAL DETACHMENT [None]
  - RETINAL VEIN OCCLUSION [None]
  - RETINOPATHY PROLIFERATIVE [None]
  - VITREOUS HAEMORRHAGE [None]
